FAERS Safety Report 6226846-5 (Version None)
Quarter: 2009Q2

REPORT INFORMATION
  Report Type: 
  Country: None (occurrence: None)
  Receive Date: 20090612
  Receipt Date: 20090522
  Transmission Date: 20091009
  Serious: No
  Sender: FDA-Public Use
  Company Number: US-ABBOTT-09P-163-0575562-00

PATIENT
  Sex: Female
  Weight: 47.67 kg

DRUGS (4)
  1. HUMIRA [Suspect]
     Indication: CROHN'S DISEASE
     Route: 058
     Dates: start: 20081101
  2. ENTECORT [Concomitant]
     Indication: CROHN'S DISEASE
  3. LIALDA [Concomitant]
     Indication: COLITIS ULCERATIVE
  4. PRILOSEC [Concomitant]
     Indication: GASTRITIS

REACTIONS (2)
  - CONTUSION [None]
  - VASCULAR RUPTURE [None]
